FAERS Safety Report 8396775 (Version 5)
Quarter: 2012Q4

REPORT INFORMATION
  Report Type: 
  Country: US (occurrence: US)
  Receive Date: 20120208
  Receipt Date: 20121128
  Transmission Date: 20130627
  Serious: Yes (Life-Threatening, Hospitalization, Other)
  Sender: FDA-Public Use
  Company Number: US-ASTRAZENECA-2012SE06881

PATIENT
  Age: 72 Year
  Sex: Female

DRUGS (5)
  1. NEXIUM [Suspect]
     Route: 048
  2. PRILOSEC OTC [Suspect]
     Route: 048
  3. PRILOSEC [Suspect]
     Route: 048
  4. PRILOSEC [Suspect]
     Dosage: OMEPRAZOLE GENERIC
     Route: 048
  5. UNSPECIFIED CHEMOTHERAPY DRUGS [Suspect]
     Route: 065

REACTIONS (13)
  - Multi-organ failure [Unknown]
  - Colon cancer [Unknown]
  - Neoplasm [Unknown]
  - Gastrooesophageal reflux disease [Unknown]
  - Gastrooesophageal reflux disease [Unknown]
  - Dysphonia [Unknown]
  - Cough [Unknown]
  - Drug intolerance [Unknown]
  - Urinary incontinence [Unknown]
  - Adverse event [Unknown]
  - Off label use [Unknown]
  - Drug dose omission [Unknown]
  - Drug ineffective [Unknown]
